FAERS Safety Report 10618532 (Version 1)
Quarter: 2014Q4

REPORT INFORMATION
  Report Type: Spontaneous
  Country: JP (occurrence: JP)
  Receive Date: 20141202
  Receipt Date: 20141202
  Transmission Date: 20150529
  Serious: Yes (Other)
  Sender: FDA-Public Use
  Company Number: JP-UCBSA-2014020528

PATIENT
  Sex: Male

DRUGS (1)
  1. NEUPRO [Suspect]
     Active Substance: ROTIGOTINE
     Indication: PRODUCT USED FOR UNKNOWN INDICATION
     Dosage: EXPOSED TO 12 MG DOSE STRENGTH
     Dates: start: 2014

REACTIONS (5)
  - Eye irritation [Unknown]
  - Headache [Unknown]
  - Accidental exposure to product [Unknown]
  - Eye pain [Unknown]
  - Retinal detachment [Unknown]

NARRATIVE: CASE EVENT DATE: 2014
